FAERS Safety Report 24748092 (Version 1)
Quarter: 2024Q4

REPORT INFORMATION
  Report Type: Spontaneous
  Country: CA (occurrence: CA)
  Receive Date: 20241218
  Receipt Date: 20241218
  Transmission Date: 20250114
  Serious: Yes (Death, Other)
  Sender: RANBAXY
  Company Number: CA-SUN PHARMACEUTICAL INDUSTRIES LTD-2024R1-484893

PATIENT
  Age: 73 Year
  Sex: Male

DRUGS (1)
  1. PREDNISONE [Suspect]
     Active Substance: PREDNISONE
     Indication: Transplant rejection
     Dosage: 60 MILLIGRAM, DAILY
     Route: 065

REACTIONS (3)
  - Graft infection [Fatal]
  - Bladder cancer [Fatal]
  - Asthenia [Fatal]
